FAERS Safety Report 5340824-X (Version None)
Quarter: 2007Q2

REPORT INFORMATION
  Report Type: 
  Country: None (occurrence: None)
  Receive Date: 20070405
  Receipt Date: 20061113
  Transmission Date: 20071010
  Serious: Yes (Other)
  Sender: FDA-Public Use
  Company Number: US200609007176

PATIENT
  Age: 53 Year
  Sex: Female

DRUGS (11)
  1. CYMBALTA [Suspect]
     Indication: DEPRESSION
     Dosage: 60 MG
     Dates: start: 20060225, end: 20060925
  2. LEVOXYL [Concomitant]
  3. ACIPHEX [Concomitant]
  4. ADVAIR DISKUS 100/50 [Concomitant]
  5. IMITREX [Concomitant]
  6. METHOCARBAMOL [Concomitant]
  7. NAPROSYN /NOR/ (NAPROXEN) [Concomitant]
  8. VICODIN (HYDROCHDONE BITARTRATE, PARACETAMOL) [Concomitant]
  9. VALIUM /NET/ (DIAZEPAM) [Concomitant]
  10. GABITRIL /SCH/  (TIAGABINE HYDROCHLORIDE) [Concomitant]
  11. GLUCOSAMINE (GLUCOSAMINE) [Concomitant]

REACTIONS (3)
  - CORNEAL ABRASION [None]
  - GLAUCOMA [None]
  - RETINAL DETACHMENT [None]
